FAERS Safety Report 16839357 (Version 1)
Quarter: 2019Q3

REPORT INFORMATION
  Report Type: Report from Study
  Country: BR (occurrence: BR)
  Receive Date: 20190923
  Receipt Date: 20190923
  Transmission Date: 20191005
  Serious: Yes (Hospitalization)
  Sender: FDA-Public Use
  Company Number: BR-BRISTOL-MYERS SQUIBB COMPANY-BMS-2019-090122

PATIENT
  Sex: Female

DRUGS (1)
  1. ABATACEPT [Suspect]
     Active Substance: ABATACEPT
     Indication: RHEUMATOID ARTHRITIS
     Dosage: UNK, QMO
     Route: 065

REACTIONS (7)
  - Malaise [Recovering/Resolving]
  - Cardiac disorder [Recovering/Resolving]
  - Hypersensitivity [Recovering/Resolving]
  - Urinary incontinence [Recovering/Resolving]
  - Hypophagia [Recovering/Resolving]
  - Dyspnoea [Recovering/Resolving]
  - Renal disorder [Recovering/Resolving]
